FAERS Safety Report 18592316 (Version 1)
Quarter: 2020Q4

REPORT INFORMATION
  Report Type: Report from Study
  Country: None (occurrence: CA)
  Receive Date: 20201208
  Receipt Date: 20201208
  Transmission Date: 20210114
  Serious: Yes (Other)
  Sender: FDA-Public Use
  Company Number: CA-ABBVIE-20K-028-3681018-00

PATIENT
  Sex: Female

DRUGS (1)
  1. HUMIRA [Suspect]
     Active Substance: ADALIMUMAB
     Indication: UVEITIS
     Route: 058
     Dates: start: 20160412

REACTIONS (4)
  - Headache [Not Recovered/Not Resolved]
  - Neoplasm [Not Recovered/Not Resolved]
  - Hyperacusis [Not Recovered/Not Resolved]
  - Eye pain [Not Recovered/Not Resolved]
